FAERS Safety Report 6333879-7 (Version None)
Quarter: 2009Q3

REPORT INFORMATION
  Report Type: 
  Country: None (occurrence: None)
  Receive Date: 20090829
  Receipt Date: 20090617
  Transmission Date: 20100115
  Serious: No
  Sender: FDA-Public Use
  Company Number: US-ABBOTT-09P-163-0580547-00

PATIENT
  Sex: Male
  Weight: 81.72 kg

DRUGS (6)
  1. SIMCOR [Suspect]
     Indication: LABORATORY TEST ABNORMAL
     Dosage: 500/20MG
     Route: 048
     Dates: start: 20090606
  2. ALLOPURINOL [Concomitant]
     Indication: DRUG USE FOR UNKNOWN INDICATION
  3. METHIMAZOLE [Concomitant]
     Indication: DRUG USE FOR UNKNOWN INDICATION
  4. DIOVAN HCT [Concomitant]
     Indication: DRUG USE FOR UNKNOWN INDICATION
  5. PRILOSEC [Concomitant]
     Indication: DRUG USE FOR UNKNOWN INDICATION
  6. ASPIRIN [Concomitant]
     Indication: DRUG USE FOR UNKNOWN INDICATION

REACTIONS (2)
  - DYSPEPSIA [None]
  - PRURITUS [None]
